FAERS Safety Report 9491501 (Version 2)
Quarter: 2013Q1

REPORT INFORMATION
  Report Type: Not Available
  Country: US (occurrence: US)
  Receive Date: 20121219
  Receipt Date: 20121219
  Transmission Date: 20140127
  Serious: Yes (Hospitalization)
  Sender: FDA-Public Use
  Company Number: US-LUNDBECK-DKLU1060633

PATIENT
  Age: 5 None
  Sex: Male
  Weight: 20.5 kg

DRUGS (6)
  1. CLOBAZAM [Suspect]
     Indication: LENNOX-GASTAUT SYNDROME
     Route: 048
     Dates: start: 20080624
  2. CLOBAZAM [Suspect]
     Route: 048
     Dates: start: 20080624
  3. CLOBAZAM [Suspect]
     Route: 048
     Dates: start: 20081031
  4. TOPAMAX [Concomitant]
     Indication: CONVULSION
     Route: 048
     Dates: start: 20061031
  5. KEPPRA [Concomitant]
     Indication: CONVULSION
     Route: 048
     Dates: start: 2006
  6. TEGRETOL [Concomitant]
     Indication: CONVULSION
     Route: 048
     Dates: start: 200407

REACTIONS (1)
  - Grand mal convulsion [Recovered/Resolved]
